FAERS Safety Report 8505567-X (Version None)
Quarter: 2012Q3

REPORT INFORMATION
  Report Type: 
  Country: None (occurrence: None)
  Receive Date: 20120712
  Receipt Date: 20120702
  Transmission Date: 20120928
  Serious: Yes (Hospitalization)
  Sender: FDA-Public Use
  Company Number: US-ELI_LILLY_AND_COMPANY-US201202005977

PATIENT
  Sex: Female

DRUGS (38)
  1. PLAQUINOL TAB [Concomitant]
     Dosage: 200 MG, BID
  2. POTASSIUM CHLORIDE [Concomitant]
     Dosage: 40 MEQ, TID
  3. VALIUM [Concomitant]
     Dosage: 5 MG, TID
  4. CLOBETASOL PROPIONATE [Concomitant]
     Indication: ECZEMA
  5. FORTEO [Suspect]
     Indication: OSTEOPOROSIS
     Dosage: 20 UG, QD
     Dates: start: 20111101
  6. SOMA [Concomitant]
     Dosage: 350 MG, TID
  7. BACLOFEN [Concomitant]
     Dosage: 10 MG, TID
  8. VERAPAMIL [Concomitant]
     Dosage: 120 MG, QD
  9. COUMADIN [Concomitant]
  10. SENNA-MINT WAF [Concomitant]
     Dosage: UNK, BID
  11. LANTUS [Concomitant]
     Dosage: 26 U, QD
  12. ADVAIR DISKUS 100/50 [Concomitant]
     Dosage: UNK, BID
  13. ASPIRIN [Concomitant]
     Dosage: 81 MG, QD
  14. PHENERGAN HCL [Concomitant]
     Indication: NAUSEA
     Dosage: UNK, PRN
  15. MS CONTIN [Concomitant]
     Dosage: 60 MG, TID
  16. OMEPRAZOLE [Concomitant]
     Dosage: UNK, QD
  17. BACTROBAN [Concomitant]
     Indication: NASAL DRYNESS
  18. PROAIR HFA [Concomitant]
     Dosage: UNK, BID
  19. ZOFRAN [Concomitant]
     Indication: NAUSEA
     Dosage: 8 MG, EVERY 6 HRS
  20. ALDACTONE [Concomitant]
     Dosage: 50 MG, BID
  21. MIRALAX [Concomitant]
     Dosage: 17 MG, QD
  22. LOVENOX [Concomitant]
     Dosage: 100 MG, QD
  23. LASIX [Concomitant]
     Dosage: 40 MG, TID
  24. METOLAZONE [Concomitant]
     Dosage: 5 MG, UNK
  25. IBUPROFEN [Concomitant]
     Dosage: 600 MG, TID
  26. BENEFIBER [Concomitant]
     Dosage: 17 MG, QD
  27. MORPHINE SULFATE [Concomitant]
     Indication: PAIN
  28. GABAPENTIN [Concomitant]
     Dosage: 400 MG, QID
  29. REGLAN [Concomitant]
     Dosage: 10 MG, QID
  30. FORTEO [Suspect]
     Dosage: 20 UG, QD
  31. FIORICET [Concomitant]
     Indication: MIGRAINE
     Dosage: UNK, QID
  32. LEVOTHYROXINE SODIUM [Concomitant]
     Dosage: 25 UG, QD
  33. AMITRIPTYLINE HCL [Concomitant]
     Dosage: 25 MG, OTHER
  34. DEXAMETHASONE [Concomitant]
  35. CALCIUM WITH VITAMIN D [Concomitant]
     Dosage: 600 MG, TID
  36. ZANTAC [Concomitant]
     Dosage: 150 MG, TID
  37. DIFLUCAN [Concomitant]
     Indication: CANDIDIASIS
     Dosage: 150 MG, QD
  38. HUMALOG [Concomitant]

REACTIONS (8)
  - HOSPITALISATION [None]
  - BACK DISORDER [None]
  - BONE PAIN [None]
  - OXYGEN SATURATION DECREASED [None]
  - MUSCLE SPASMS [None]
  - APHONIA [None]
  - SYSTEMIC LUPUS ERYTHEMATOSUS [None]
  - OPEN WOUND [None]
